FAERS Safety Report 11835232 (Version 1)
Quarter: 2015Q4

REPORT INFORMATION
  Report Type: Spontaneous
  Country: NL (occurrence: NL)
  Receive Date: 20151215
  Receipt Date: 20151215
  Transmission Date: 20160305
  Serious: Yes (Other)
  Sender: FDA-Public Use
  Company Number: NL-ACCORD-035817

PATIENT
  Sex: Male

DRUGS (1)
  1. SIMVASTATIN ACCORD [Suspect]
     Active Substance: SIMVASTATIN
     Indication: PRODUCT USED FOR UNKNOWN INDICATION
     Dosage: STRENGTH: 20 MG DAILY DOSAGE: 1X1
     Dates: start: 20120508

REACTIONS (5)
  - Paraesthesia oral [Recovered/Resolved]
  - Dysphagia [Unknown]
  - Product taste abnormal [Recovered/Resolved]
  - Product odour abnormal [Unknown]
  - Abdominal discomfort [Unknown]
